FAERS Safety Report 7604428-8 (Version None)
Quarter: 2011Q3

REPORT INFORMATION
  Report Type: 
  Country: None (occurrence: None)
  Receive Date: 20110712
  Receipt Date: 20110708
  Transmission Date: 20111222
  Serious: Yes (Death, Hospitalization)
  Sender: FDA-Public Use
  Company Number: US-ASTRAZENECA-2011SE40873

PATIENT
  Age: 72 Year
  Sex: Male

DRUGS (24)
  1. LAMISIL [Concomitant]
  2. B1 [Concomitant]
  3. FELODIPINE [Concomitant]
  4. COMBIVENT [Concomitant]
  5. PLAQUENIL [Concomitant]
  6. B COMLEX [Concomitant]
  7. D3 [Concomitant]
  8. METOPROLOL TARTRATE [Concomitant]
  9. ALLEGRA [Concomitant]
  10. CO Q10 [Concomitant]
  11. ZOCOR [Concomitant]
  12. GLIBERIDE [Concomitant]
  13. BETHANECHOL [Concomitant]
  14. PREDNISONE [Concomitant]
  15. FLONASE [Concomitant]
  16. BACTROBAN [Concomitant]
  17. CARDURA [Concomitant]
  18. ASPIRIN [Concomitant]
  19. CALCIUM WITH D [Concomitant]
  20. BIOTIN [Concomitant]
  21. SEROQUEL [Suspect]
     Indication: SLEEP DISORDER
     Route: 048
     Dates: start: 20080101
  22. METFORMIN HCL [Concomitant]
  23. ALENDRONATE SODIUM [Concomitant]
  24. LISINOPRIL [Concomitant]

REACTIONS (2)
  - MYOCARDIAL INFARCTION [None]
  - CARDIAC OPERATION [None]
